FAERS Safety Report 4632679-3 (Version None)
Quarter: 2005Q2

REPORT INFORMATION
  Report Type: 
  Country: None (occurrence: None)
  Receive Date: 20050331
  Receipt Date: 20041026
  Transmission Date: 20051028
  Serious: Yes (Other)
  Sender: FDA-Public Use
  Company Number: 200415193BCC

PATIENT
  Age: 60 Year
  Sex: Female
  Weight: 65.7716 kg

DRUGS (6)
  1. ALEVE [Suspect]
     Indication: PAIN
     Dosage: 220 MG, QD, ORAL
     Route: 048
     Dates: start: 20041012
  2. CELEBREX [Concomitant]
  3. PROZAC [Concomitant]
  4. TYLENOL PM [Concomitant]
  5. FLONASE [Concomitant]
  6. LEVOTHROID [Concomitant]

REACTIONS (1)
  - BLOOD URINE PRESENT [None]
